FAERS Safety Report 9548545 (Version 1)
Quarter: 2013Q3

REPORT INFORMATION
  Report Type: Spontaneous
  Country: US (occurrence: None)
  Receive Date: 20130919
  Receipt Date: 20130919
  Transmission Date: 20140515
  Serious: Yes (Other)
  Sender: FDA-Public Use
  Company Number: 130307

PATIENT
  Age: 51 Year
  Sex: Female
  Weight: 65.77 kg

DRUGS (2)
  1. SUPREP BOWEL PREP KIT [Suspect]
     Indication: COLONOSCOPY
     Dosage: 2X6 OZ BOTTLE
     Route: 048
     Dates: start: 20130908
  2. ARMOUR THYROID [Concomitant]

REACTIONS (6)
  - Vomiting [None]
  - Headache [None]
  - Nausea [None]
  - Tremor [None]
  - Hypokalaemia [None]
  - Hyponatraemia [None]
